FAERS Safety Report 4710470-7 (Version None)
Quarter: 2005Q3

REPORT INFORMATION
  Report Type: 
  Country: None (occurrence: None)
  Receive Date: 20050711
  Receipt Date: 20050628
  Transmission Date: 20060218
  Serious: Yes (Death, Life-Threatening, Hospitalization, Other)
  Sender: FDA-Public Use
  Company Number: JP-JNJFOC-20041200462

PATIENT
  Age: 76 Year
  Sex: Female

DRUGS (5)
  1. TAVANIC [Suspect]
     Indication: BRONCHITIS
     Route: 049
  2. MEDROL [Concomitant]
     Indication: CHRONIC OBSTRUCTIVE PULMONARY DISEASE
     Dosage: GIVEN FOR } 4 MONTHS
  3. ALLOPURINOL [Concomitant]
     Dosage: GIVEN FOR } 4 MONTHS
  4. TENORMIN [Concomitant]
     Dosage: GIVEN FOR } 4 MONTHS
  5. TRYPTIZOL [Concomitant]

REACTIONS (7)
  - CARDIAC ARREST [None]
  - DISSEMINATED INTRAVASCULAR COAGULATION [None]
  - HYPOTHERMIA [None]
  - MULTI-ORGAN FAILURE [None]
  - RENAL FAILURE ACUTE [None]
  - SEPTIC SHOCK [None]
  - TOXIC EPIDERMAL NECROLYSIS [None]
